FAERS Safety Report 5056350-1 (Version None)
Quarter: 2006Q3

REPORT INFORMATION
  Report Type: 
  Country: None (occurrence: None)
  Receive Date: 20060717
  Receipt Date: 20060710
  Transmission Date: 20061208
  Serious: Yes (Hospitalization)
  Sender: FDA-Public Use
  Company Number: L06-GER-02679-01

PATIENT
  Age: 60 Year
  Sex: Female

DRUGS (1)
  1. DILTIAZEM HCL [Suspect]
     Indication: HYPERTENSION

REACTIONS (11)
  - ACUTE GENERALISED EXANTHEMATOUS PUSTULOSIS [None]
  - ALANINE AMINOTRANSFERASE INCREASED [None]
  - ASPARTATE AMINOTRANSFERASE INCREASED [None]
  - BLOOD LACTATE DEHYDROGENASE INCREASED [None]
  - CONJUNCTIVITIS [None]
  - DERMATITIS [None]
  - IMPAIRED HEALING [None]
  - MUCOSAL EROSION [None]
  - ORAL MUCOSA EROSION [None]
  - SKIN EXFOLIATION [None]
  - SKIN TEST POSITIVE [None]
